FAERS Safety Report 7979801-9 (Version None)
Quarter: 2011Q4

REPORT INFORMATION
  Report Type: 
  Country: None (occurrence: None)
  Receive Date: 20111214
  Receipt Date: 20111130
  Transmission Date: 20120403
  Serious: Yes (Life-Threatening, Other)
  Sender: FDA-Public Use
  Company Number: US-ROCHE-1018108

PATIENT
  Sex: Female

DRUGS (15)
  1. ASACOL [Concomitant]
  2. PULMICORT [Concomitant]
  3. ALTACE [Concomitant]
  4. VITAMIN B-12 [Concomitant]
  5. CHLORDIAZEPOXIDE/CLIDINIUM BR [Concomitant]
  6. BENTYL [Concomitant]
  7. PREDNISONE TAB [Suspect]
     Indication: PRODUCT USED FOR UNKNOWN INDICATION
  8. SPIRIVA [Concomitant]
  9. CRESTOR [Concomitant]
  10. HYDROCORTISONE [Concomitant]
  11. VITAMIN D [Concomitant]
  12. XOLAIR [Suspect]
     Indication: PRODUCT USED FOR UNKNOWN INDICATION
  13. BROVANA [Concomitant]
  14. DEXALTIN [Concomitant]
  15. CALCIUM [Concomitant]

REACTIONS (8)
  - SWELLING FACE [None]
  - PAIN [None]
  - SKIN BURNING SENSATION [None]
  - ESCHERICHIA URINARY TRACT INFECTION [None]
  - DYSPNOEA [None]
  - RASH [None]
  - PRURITUS [None]
  - DIARRHOEA [None]
